FAERS Safety Report 15936110 (Version 3)
Quarter: 2019Q1

REPORT INFORMATION
  Report Type: Spontaneous
  Country: PT (occurrence: PT)
  Receive Date: 20190208
  Receipt Date: 20190322
  Transmission Date: 20190417
  Serious: Yes (Other)
  Sender: FDA-Public Use
  Company Number: PT-AUROBINDO-AUR-APL-2019-006472

PATIENT

DRUGS (4)
  1. LORAZEPAM. [Suspect]
     Active Substance: LORAZEPAM
     Indication: MENTAL DISORDER
     Dosage: 3 MILLIGRAM, ONCE A DAY
     Route: 065
  2. PALIPERIDONE. [Concomitant]
     Active Substance: PALIPERIDONE
     Indication: MENTAL DISORDER
     Dosage: UNK
     Route: 065
  3. LORAZEPAM. [Concomitant]
     Active Substance: LORAZEPAM
     Indication: PRODUCT USED FOR UNKNOWN INDICATION
     Dosage: 1 MILLIGRAM
     Route: 065
  4. ARIPIPRAZOLE. [Suspect]
     Active Substance: ARIPIPRAZOLE
     Indication: PSYCHOTIC DISORDER
     Dosage: 20 MILLIGRAM, ONCE A DAY
     Route: 048

REACTIONS (2)
  - Vision blurred [Recovered/Resolved]
  - Pseudomyopia [Recovered/Resolved]
